FAERS Safety Report 9006451 (Version 1)
Quarter: 2013Q1

REPORT INFORMATION
  Report Type: Report from Study
  Country: CA (occurrence: CA)
  Receive Date: 20130110
  Receipt Date: 20130110
  Transmission Date: 20140127
  Serious: Yes (Other)
  Sender: FDA-Public Use
  Company Number: CA-JNJFOC-20130102177

PATIENT
  Sex: Female
  Weight: 57 kg

DRUGS (5)
  1. REMICADE [Suspect]
     Indication: CROHN^S DISEASE
     Route: 042
     Dates: start: 20091222, end: 201211
  2. TRAZODONE [Concomitant]
     Route: 065
  3. ANTI DEPRESSANTS [Concomitant]
     Route: 065
  4. TPN [Concomitant]
     Route: 065
  5. HYDROMORPHONE [Concomitant]
     Route: 065

REACTIONS (1)
  - Gastrointestinal stoma complication [Unknown]
